FAERS Safety Report 5788938-4 (Version None)
Quarter: 2008Q2

REPORT INFORMATION
  Report Type: 
  Country: None (occurrence: None)
  Receive Date: 20080626
  Receipt Date: 20071101
  Transmission Date: 20081010
  Serious: No
  Sender: FDA-Public Use
  Company Number: US-ASTRAZENECA-2007UW28960

PATIENT
  Age: 14 Year
  Sex: Male
  Weight: 50 kg

DRUGS (4)
  1. PULMICORT FLEXHALER [Suspect]
     Indication: ASTHMA
     Route: 055
     Dates: start: 20070101
  2. SINGULAIR [Concomitant]
  3. ZYRTEC [Concomitant]
  4. FLONASE [Concomitant]

REACTIONS (2)
  - DYSPNOEA [None]
  - FATIGUE [None]
